FAERS Safety Report 5060761-8 (Version None)
Quarter: 2006Q3

REPORT INFORMATION
  Report Type: 
  Country: None (occurrence: None)
  Receive Date: 20060725
  Receipt Date: 20060718
  Transmission Date: 20061208
  Serious: Yes (Hospitalization, Other)
  Sender: FDA-Public Use
  Company Number: BR-AVENTIS-200617583GDDC

PATIENT
  Age: 65 Year
  Sex: Female
  Weight: 69 kg

DRUGS (7)
  1. ARAVA [Suspect]
     Indication: RHEUMATOID ARTHRITIS
     Route: 048
     Dates: start: 20050423, end: 20050425
  2. ARAVA [Suspect]
     Route: 048
     Dates: start: 20050426, end: 20060126
  3. ARAVA [Suspect]
     Route: 048
     Dates: start: 20060127, end: 20060410
  4. ARAVA [Suspect]
     Route: 048
     Dates: start: 20060411, end: 20060512
  5. METICORTEN [Concomitant]
     Indication: PAIN
     Route: 048
     Dates: start: 20040401, end: 20060512
  6. METICORTEN [Concomitant]
     Indication: INFLAMMATION
     Route: 048
     Dates: start: 20040401, end: 20060512
  7. FLOTAC [Concomitant]
     Indication: PAIN
     Route: 048
     Dates: start: 20040401, end: 20050512

REACTIONS (6)
  - ABDOMINAL PAIN [None]
  - CHOLURIA [None]
  - HEPATITIS [None]
  - ICTERUS INDEX INCREASED [None]
  - PYREXIA [None]
  - VOMITING [None]
